FAERS Safety Report 20252311 (Version 4)
Quarter: 2022Q1

REPORT INFORMATION
  Report Type: Spontaneous
  Country: FR (occurrence: FR)
  Receive Date: 20211229
  Receipt Date: 20220206
  Transmission Date: 20220423
  Serious: Yes (Death, Hospitalization, Other)
  Sender: FDA-Public Use
  Company Number: FR-NOVARTISPH-NVSC2021FR297777

PATIENT
  Age: 72 Year
  Sex: Female
  Weight: 50 kg

DRUGS (2)
  1. FLUDARABINE [Suspect]
     Active Substance: FLUDARABINE PHOSPHATE
     Indication: Plasma cell myeloma
     Dosage: 30 MG/M2, QD
     Route: 041
     Dates: start: 20210824, end: 20210826
  2. CYCLOPHOSPHAMIDE [Suspect]
     Active Substance: CYCLOPHOSPHAMIDE
     Indication: Plasma cell myeloma
     Dosage: 300 MG/M2, QD
     Route: 041
     Dates: start: 20210824, end: 20210826

REACTIONS (13)
  - Plasma cell myeloma [Fatal]
  - Hypogammaglobulinaemia [Recovered/Resolved]
  - Cytokine release syndrome [Recovered/Resolved]
  - Cytopenia [Unknown]
  - Aneurysm [Recovered/Resolved]
  - Thrombocytopenia [Unknown]
  - Somnolence [Recovered/Resolved]
  - Pulmonary alveolar haemorrhage [Unknown]
  - Immune effector cell-associated neurotoxicity syndrome [Recovered/Resolved]
  - Bone marrow failure [Unknown]
  - Cutaneous mucormycosis [Recovered/Resolved]
  - Unevaluable event [Unknown]
  - Fungal infection [Unknown]

NARRATIVE: CASE EVENT DATE: 20210101
